FAERS Safety Report 7466764-8 (Version None)
Quarter: 2011Q2

REPORT INFORMATION
  Report Type: 
  Country: None (occurrence: None)
  Receive Date: 20110509
  Receipt Date: 20100901
  Transmission Date: 20111010
  Serious: No
  Sender: FDA-Public Use
  Company Number: US-ALEXION-A201001115

PATIENT
  Sex: Male

DRUGS (5)
  1. SOLIRIS [Suspect]
     Indication: PAROXYSMAL NOCTURNAL HAEMOGLOBINURIA
     Dosage: 600 MG, QWX5
     Route: 042
     Dates: start: 20100101
  2. AMBIEN [Concomitant]
     Indication: INITIAL INSOMNIA
     Dosage: 10 MG, PRN
     Route: 048
     Dates: start: 20100301
  3. SOLIRIS [Suspect]
     Dosage: 900 MG, Q2W
     Route: 042
  4. BACTRIM [Concomitant]
     Indication: SKIN DISORDER
     Dosage: UNK
     Route: 048
     Dates: start: 20100801
  5. FOLIC ACID [Concomitant]
     Indication: PAROXYSMAL NOCTURNAL HAEMOGLOBINURIA
     Dosage: 1 MG, QD
     Route: 048
     Dates: start: 20060101

REACTIONS (5)
  - CHAPPED LIPS [None]
  - DEPRESSED MOOD [None]
  - LIP DRY [None]
  - CHEILITIS [None]
  - LIP PAIN [None]
